FAERS Safety Report 6763422-X (Version None)
Quarter: 2010Q2

REPORT INFORMATION
  Report Type: 
  Country: None (occurrence: None)
  Receive Date: 20100610
  Receipt Date: 20100602
  Transmission Date: 20101027
  Serious: Yes (Death, Disabling)
  Sender: FDA-Public Use
  Company Number: JP-BAYER-201012733BYL

PATIENT
  Age: 21 Year
  Sex: Male
  Weight: 77 kg

DRUGS (6)
  1. NEXAVAR [Suspect]
     Indication: RENAL CELL CARCINOMA
     Dosage: UNIT DOSE: 200 MG
     Route: 048
     Dates: start: 20090804, end: 20090828
  2. KERATINAMIN [Concomitant]
     Indication: PROPHYLAXIS
     Dosage: SEVERAL TIMES/DAY
     Route: 061
     Dates: start: 20090804, end: 20090808
  3. NAPROXEN [Concomitant]
     Indication: SUPPORTIVE CARE
     Dosage: UNIT DOSE: 100 MG
     Route: 048
     Dates: start: 20090804, end: 20090828
  4. TAKEPRON [Concomitant]
     Indication: PROPHYLAXIS
     Dosage: UNIT DOSE: 30 MG
     Route: 048
     Dates: start: 20090804, end: 20090828
  5. SUMIFERON DS [Concomitant]
     Dosage: TOTAL DAILY DOSE: 300 MIU  UNIT DOSE: 300 MIU
     Route: 030
     Dates: start: 20090805, end: 20090807
  6. SUMIFERON DS [Concomitant]
     Dosage: TOTAL DAILY DOSE: 1800 MIU  UNIT DOSE: 600 MIU
     Route: 030
     Dates: start: 20090810, end: 20090828

REACTIONS (1)
  - HEPATIC FUNCTION ABNORMAL [None]
